FAERS Safety Report 13467688 (Version 1)
Quarter: 2017Q2

REPORT INFORMATION
  Report Type: Spontaneous
  Country: AU (occurrence: AU)
  Receive Date: 20170421
  Receipt Date: 20170421
  Transmission Date: 20170830
  Serious: Yes (Other)
  Sender: FDA-Public Use
  Company Number: AU-ARIAD PHARMACEUTICALS, INC-2017AU008107

PATIENT
  Age: 60 Year
  Sex: Female

DRUGS (4)
  1. 6-MERCAPTOPURINE MONOHYDRATE [Suspect]
     Active Substance: MERCAPTOPURINE
     Indication: ACUTE LYMPHOCYTIC LEUKAEMIA
     Dosage: UNK
  2. ICLUSIG [Suspect]
     Active Substance: PONATINIB
     Dosage: 15 MG, QD
     Route: 048
  3. ICLUSIG [Suspect]
     Active Substance: PONATINIB
     Indication: ACUTE LYMPHOCYTIC LEUKAEMIA
     Dosage: 45 MG, QD
     Route: 048
  4. MTX [Suspect]
     Active Substance: METHOTREXATE SODIUM
     Indication: ACUTE LYMPHOCYTIC LEUKAEMIA
     Dosage: UNK

REACTIONS (4)
  - Acute lymphocytic leukaemia recurrent [Unknown]
  - Posterior reversible encephalopathy syndrome [Unknown]
  - Cytopenia [Unknown]
  - Acute lymphocytic leukaemia recurrent [Unknown]

NARRATIVE: CASE EVENT DATE: 20161111
